FAERS Safety Report 10494309 (Version 1)
Quarter: 2014Q4

REPORT INFORMATION
  Report Type: Spontaneous
  Country: US (occurrence: None)
  Receive Date: 20141002
  Receipt Date: 20141002
  Transmission Date: 20150528
  Serious: Yes (Life-Threatening, Other)
  Sender: FDA-Public Use
  Company Number: None

PATIENT
  Age: 25 Year
  Sex: Female
  Weight: 131.09 kg

DRUGS (1)
  1. LEVOFLOXACIN 750 [Suspect]
     Active Substance: LEVOFLOXACIN
     Indication: PNEUMONIA
     Route: 048
     Dates: start: 20140322, end: 20140324

REACTIONS (3)
  - Flatulence [None]
  - Fungal infection [None]
  - Abdominal pain [None]

NARRATIVE: CASE EVENT DATE: 20140322
